FAERS Safety Report 6198657-0 (Version None)
Quarter: 2009Q2

REPORT INFORMATION
  Report Type: 
  Country: None (occurrence: None)
  Receive Date: 20090521
  Receipt Date: 20090506
  Transmission Date: 20091009
  Serious: Yes (Hospitalization, Other)
  Sender: FDA-Public Use
  Company Number: SE-GENENTECH-283379

PATIENT
  Sex: Male

DRUGS (3)
  1. LUCENTIS [Suspect]
     Indication: MACULAR DEGENERATION
     Dosage: UNK
     Route: 031
     Dates: start: 20081217
  2. LUCENTIS [Suspect]
     Route: 031
  3. LUCENTIS [Suspect]
     Dosage: UNK
     Route: 031
     Dates: start: 20090216

REACTIONS (1)
  - ANGINA PECTORIS [None]
